FAERS Safety Report 5929861-1 (Version None)
Quarter: 2008Q4

REPORT INFORMATION
  Report Type: 
  Country: None (occurrence: None)
  Receive Date: 20081024
  Receipt Date: 20081015
  Transmission Date: 20090506
  Serious: Yes (Hospitalization, Other)
  Sender: FDA-Public Use
  Company Number: DE-ROCHE-587928

PATIENT
  Sex: Male

DRUGS (1)
  1. LARIAM [Suspect]
     Indication: MALARIA PROPHYLAXIS
     Dosage: 'PATIENT TOOK FOUR TABLETS IN TOTAL'.
     Route: 065
     Dates: start: 20080801

REACTIONS (2)
  - POLYNEUROPATHY [None]
  - SPINAL COLUMN STENOSIS [None]
